FAERS Safety Report 8847056 (Version 1)
Quarter: 2012Q4

REPORT INFORMATION
  Report Type: 
  Country: JP (occurrence: JP)
  Receive Date: 20121018
  Receipt Date: 20121018
  Transmission Date: 20130627
  Serious: Yes (Other)
  Sender: FDA-Public Use
  Company Number: JP-JNJFOC-20121002358

PATIENT
  Age: 76 Year
  Sex: Male

DRUGS (7)
  1. TRAMCET [Suspect]
     Indication: PAIN
     Dosage: 1 per 1 day
     Route: 048
  2. TRAMCET [Suspect]
     Indication: PAIN
     Route: 048
     Dates: start: 20120823, end: 20120830
  3. METHYCOBAL [Concomitant]
     Route: 065
  4. NITOROL [Concomitant]
     Route: 048
  5. GLAKAY [Concomitant]
     Route: 048
  6. OPALMON [Concomitant]
     Route: 048
  7. PREDNISOLONE [Concomitant]
     Dosage: 1 per 1 day
     Route: 048

REACTIONS (3)
  - Renal impairment [Unknown]
  - Urinary retention [Recovered/Resolved]
  - Dizziness [Recovered/Resolved]
